FAERS Safety Report 6044158-X (Version None)
Quarter: 2009Q1

REPORT INFORMATION
  Report Type: 
  Country: None (occurrence: None)
  Receive Date: 20090115
  Receipt Date: 20090115
  Transmission Date: 20090719
  Serious: No
  Sender: FDA-Public Use
  Company Number: None

PATIENT
  Sex: Male

DRUGS (10)
  1. AREDIA [Suspect]
     Indication: MULTIPLE MYELOMA
     Dosage: 90 MG MONTHLY IV
     Route: 042
     Dates: start: 19980101, end: 20010101
  2. ZOMETA [Suspect]
     Indication: MULTIPLE MYELOMA
     Dosage: 4 MG MONTHLY IV
     Route: 042
     Dates: start: 20010201, end: 20030201
  3. RADIATION THERAPY [Concomitant]
  4. THALIDOMIDE [Concomitant]
  5. ALKARAN [Concomitant]
  6. CARDIZEM [Concomitant]
  7. TIMOLOL [Concomitant]
  8. ASPIRIN [Concomitant]
  9. MONOPRIL [Concomitant]
  10. MVIS [Concomitant]

REACTIONS (2)
  - BONE DISORDER [None]
  - JAW DISORDER [None]
